FAERS Safety Report 9335445 (Version 1)
Quarter: 2013Q2

REPORT INFORMATION
  Report Type: Spontaneous
  Country: US (occurrence: US)
  Receive Date: 20130605
  Receipt Date: 20130605
  Transmission Date: 20140414
  Serious: Yes (Hospitalization, Other)
  Sender: FDA-Public Use
  Company Number: US-AMGEN-USASP2013039667

PATIENT
  Age: 57 Year
  Sex: Female
  Weight: 56.69 kg

DRUGS (12)
  1. ENBREL [Suspect]
     Indication: RHEUMATOID ARTHRITIS
     Dosage: UNK UNK, QWK
     Route: 058
     Dates: start: 20130301, end: 20130330
  2. ALLEGRA [Concomitant]
     Dosage: UNK
  3. BIOTIN [Concomitant]
     Dosage: UNK
  4. CALCIUM [Concomitant]
     Dosage: UNK
  5. ESTRACE [Concomitant]
     Dosage: UNK
  6. FISH OIL [Concomitant]
     Dosage: UNK
  7. FLONASE [Concomitant]
     Dosage: UNK
  8. FOLIC ACID [Concomitant]
     Dosage: UNK
  9. GLUCOSAMINE [Concomitant]
     Dosage: UNK
  10. LISINOPRIL [Concomitant]
     Dosage: UNK
  11. ORENCIA [Concomitant]
     Dosage: UNK
  12. VITAMIN D                          /00107901/ [Concomitant]
     Dosage: UNK

REACTIONS (3)
  - Blood pressure abnormal [Recovered/Resolved]
  - Hallucination [Recovered/Resolved]
  - Rash [Recovered/Resolved]
